FAERS Safety Report 7961062-8 (Version None)
Quarter: 2011Q4

REPORT INFORMATION
  Report Type: 
  Country: None (occurrence: None)
  Receive Date: 20111207
  Receipt Date: 20111129
  Transmission Date: 20120403
  Serious: Yes (Other)
  Sender: FDA-Public Use
  Company Number: US-JNJFOC-20111011775

PATIENT
  Sex: Female
  Weight: 16.78 kg

DRUGS (3)
  1. CONCERTA [Suspect]
     Route: 048
     Dates: start: 20100101, end: 20110101
  2. CONCERTA [Suspect]
     Route: 048
     Dates: start: 20110101
  3. CONCERTA [Suspect]
     Indication: ATTENTION DEFICIT/HYPERACTIVITY DISORDER
     Route: 048
     Dates: start: 20080101, end: 20100101

REACTIONS (5)
  - GROWTH RETARDATION [None]
  - INSOMNIA [None]
  - PERFORMANCE STATUS DECREASED [None]
  - AUTISM [None]
  - OVERDOSE [None]
